FAERS Safety Report 6491565-7 (Version None)
Quarter: 2009Q4

REPORT INFORMATION
  Report Type: 
  Country: None (occurrence: None)
  Receive Date: 20091211
  Receipt Date: 20091207
  Transmission Date: 20100525
  Serious: Yes (Other)
  Sender: FDA-Public Use
  Company Number: US-RB-026381-09

PATIENT
  Age: 37 Year
  Sex: Female

DRUGS (4)
  1. SUBOXONE [Suspect]
     Route: 060
     Dates: start: 20090701, end: 20090801
  2. SUBOXONE [Suspect]
     Route: 060
     Dates: start: 20090801, end: 20090901
  3. SUBOXONE [Suspect]
     Route: 060
     Dates: start: 20090901, end: 20090901
  4. METHADONE [Suspect]
     Route: 048
     Dates: start: 20090901

REACTIONS (4)
  - ABORTION SPONTANEOUS [None]
  - DRUG EXPOSURE DURING PREGNANCY [None]
  - NAUSEA [None]
  - VOMITING [None]
